FAERS Safety Report 13280417 (Version 1)
Quarter: 2017Q1

REPORT INFORMATION
  Report Type: Spontaneous
  Country: US (occurrence: US)
  Receive Date: 20170228
  Receipt Date: 20170228
  Transmission Date: 20170428
  Serious: Yes (Hospitalization, Disabling)
  Sender: FDA-Public Use
  Company Number: None

PATIENT
  Age: 19 Month
  Sex: Female
  Weight: 10.35 kg

DRUGS (2)
  1. VITAMIN D [Concomitant]
     Active Substance: CHOLECALCIFEROL
  2. ONDANSETRON ODT 4 MG TABLETS [Suspect]
     Active Substance: ONDANSETRON
     Indication: VOMITING
     Dosage: ?          QUANTITY:10 TABLET(S);?
     Route: 048
     Dates: start: 20170215, end: 20170216

REACTIONS (2)
  - Blood glucose decreased [None]
  - Seizure [None]

NARRATIVE: CASE EVENT DATE: 20170217
